FAERS Safety Report 9850692 (Version 2)
Quarter: 2014Q1

REPORT INFORMATION
  Report Type: Spontaneous
  Country: US (occurrence: US)
  Receive Date: 20140128
  Receipt Date: 20140130
  Transmission Date: 20141002
  Serious: No
  Sender: FDA-Public Use
  Company Number: US-TEVA-458805USA

PATIENT
  Sex: Female

DRUGS (3)
  1. PARAGARD 380A [Suspect]
     Indication: CONTRACEPTION
     Route: 015
  2. MIRENA [Suspect]
     Indication: CONTRACEPTION
     Dates: end: 2008
  3. MIRENA [Suspect]
     Dates: start: 2008

REACTIONS (1)
  - Menstruation delayed [Not Recovered/Not Resolved]
